FAERS Safety Report 6301887-8 (Version None)
Quarter: 2009Q3

REPORT INFORMATION
  Report Type: 
  Country: None (occurrence: None)
  Receive Date: 20090807
  Receipt Date: 20090724
  Transmission Date: 20100115
  Serious: Yes (Hospitalization)
  Sender: FDA-Public Use
  Company Number: GB-ROCHE-645690

PATIENT
  Age: 66 Year
  Sex: Male

DRUGS (3)
  1. RIBAVIRIN [Suspect]
     Indication: HEPATITIS C
     Dosage: 600MG AM 400 PM
     Route: 065
  2. PEG-INTERFERON ALFA 2A [Suspect]
     Indication: HEPATITIS C
     Dosage: REPORTED AS TAKEN WEEKLY
     Route: 065
     Dates: start: 20090124
  3. ANTIHYPERTENSIVE NOS [Concomitant]
     Indication: HYPERTENSION
     Route: 065

REACTIONS (1)
  - SYNCOPE [None]
